FAERS Safety Report 11767150 (Version 2)
Quarter: 2015Q4

REPORT INFORMATION
  Report Type: Spontaneous
  Country: IT (occurrence: IT)
  Receive Date: 20151123
  Receipt Date: 20151123
  Transmission Date: 20160304
  Serious: Yes (Life-Threatening, Hospitalization, Other)
  Sender: FDA-Public Use
  Company Number: IT-ACTAVIS-2015-25166

PATIENT
  Age: 70 Year
  Sex: Female

DRUGS (18)
  1. ATORVASTATIN CALCIUM (UNKNOWN) [Suspect]
     Active Substance: ATORVASTATIN CALCIUM
     Indication: PRODUCT USED FOR UNKNOWN INDICATION
     Dosage: 40 MG, DAILY
     Route: 065
  2. PANTOPRAZOLE SODIUM. [Suspect]
     Active Substance: PANTOPRAZOLE SODIUM
     Indication: PRODUCT USED FOR UNKNOWN INDICATION
     Dosage: 20 MG, DAILY
     Route: 065
  3. LORAZEPAM. [Suspect]
     Active Substance: LORAZEPAM
     Dosage: 0.75 MG/15 GTT DAILY AT NOON + 17:30
     Route: 065
     Dates: start: 201507
  4. OLANZAPINE (UNKNOWN) [Suspect]
     Active Substance: OLANZAPINE
     Indication: PRODUCT USED FOR UNKNOWN INDICATION
     Dosage: 2.5 MG, QHS
     Route: 065
     Dates: start: 201501, end: 201503
  5. OLANZAPINE (UNKNOWN) [Suspect]
     Active Substance: OLANZAPINE
     Dosage: 2.5 MG, QHS
     Route: 065
     Dates: start: 201507, end: 201509
  6. TRITTICO [Suspect]
     Active Substance: TRAZODONE HYDROCHLORIDE
     Dosage: 15 GTT DROP(S), UNK
     Dates: start: 201507
  7. LORAZEPAM. [Suspect]
     Active Substance: LORAZEPAM
     Indication: PRODUCT USED FOR UNKNOWN INDICATION
     Dosage: 1 MG/ 20 GTT QHS
     Route: 065
  8. LOPRESOR                           /00376902/ [Suspect]
     Active Substance: METOPROLOL TARTRATE
     Indication: PRODUCT USED FOR UNKNOWN INDICATION
     Dosage: 25 MG, DAILY
     Route: 048
  9. TIROSINT [Suspect]
     Active Substance: LEVOTHYROXINE SODIUM
     Indication: HYPOTHYROIDISM
     Dosage: 25 MG, UNKNOWN
     Route: 065
  10. LORAZEPAM. [Suspect]
     Active Substance: LORAZEPAM
     Dosage: 0.9 MG/18 GTT DROP(S), AT NOCTURNAL AWAKENING
     Dates: start: 201507
  11. TRITTICO [Suspect]
     Active Substance: TRAZODONE HYDROCHLORIDE
     Dosage: 13 GTT DROP(S), QHS
     Route: 065
     Dates: start: 201501, end: 201507
  12. TRIAZOLAM. [Suspect]
     Active Substance: TRIAZOLAM
     Indication: PRODUCT USED FOR UNKNOWN INDICATION
     Dosage: 0.25 MG/20 GTT DROP(S), QHS
     Route: 065
  13. QUETIAPINE [Suspect]
     Active Substance: QUETIAPINE
     Indication: PRODUCT USED FOR UNKNOWN INDICATION
     Dosage: 25 MG, QHS
     Route: 048
  14. RIVOTRIL [Suspect]
     Active Substance: CLONAZEPAM
     Indication: PRODUCT USED FOR UNKNOWN INDICATION
     Dosage: 1.8 MG/18 GTT DROP(S), QHS
     Route: 065
  15. BRILIQUE [Suspect]
     Active Substance: TICAGRELOR
     Indication: PRODUCT USED FOR UNKNOWN INDICATION
     Dosage: 90 MG, BID
     Route: 048
  16. RIVOTRIL [Suspect]
     Active Substance: CLONAZEPAM
     Dosage: 10 GTT DROP(S), ON NOCTURNAL AWAKENING
     Dates: start: 201507
  17. OLANZAPINE (UNKNOWN) [Suspect]
     Active Substance: OLANZAPINE
     Dosage: 5 MG, QHS
     Route: 065
     Dates: start: 201503, end: 201507
  18. CARDIOASPIRIN [Suspect]
     Active Substance: ASPIRIN
     Indication: PRODUCT USED FOR UNKNOWN INDICATION
     Dosage: UNK, DAILY
     Route: 065

REACTIONS (11)
  - Weight increased [Unknown]
  - Feeling cold [Unknown]
  - Dyspnoea [Unknown]
  - Discomfort [Unknown]
  - Suicide attempt [Unknown]
  - Myocardial ischaemia [Unknown]
  - Hypothyroidism [Unknown]
  - Fatigue [Unknown]
  - Electrocardiogram QT prolonged [Unknown]
  - Electrocardiogram T wave inversion [Unknown]
  - Malaise [Unknown]

NARRATIVE: CASE EVENT DATE: 201507
